FAERS Safety Report 8900656 (Version 1)
Quarter: 2012Q4

REPORT INFORMATION
  Report Type: Report from Study
  Country: DE (occurrence: DE)
  Receive Date: 20121109
  Receipt Date: 20121109
  Transmission Date: 20130627
  Serious: Yes (Hospitalization, Other)
  Sender: FDA-Public Use
  Company Number: DE-TEVA-US025205

PATIENT
  Age: 69 Year
  Sex: Female
  Weight: 69.5 kg

DRUGS (3)
  1. MYOCET [Suspect]
     Indication: BREAST CANCER
     Dosage: TRIWEEKLY
     Route: 042
     Dates: start: 20081212, end: 20081212
  2. LAPATINIB [Suspect]
     Indication: BREAST CANCER
     Dosage: 1250 Milligram Daily;
     Route: 048
     Dates: start: 20081203, end: 20081220
  3. PACLITAXEL [Suspect]
     Indication: BREAST CANCER
     Dosage: TRIWEEKLY
     Route: 042
     Dates: start: 20081212, end: 20081212

REACTIONS (3)
  - Leukopenia [Recovered/Resolved]
  - Diarrhoea [Recovered/Resolved]
  - Gastritis [Unknown]
